FAERS Safety Report 23576296 (Version 1)
Quarter: 2024Q1

REPORT INFORMATION
  Report Type: Spontaneous
  Country: IN (occurrence: IN)
  Receive Date: 20240228
  Receipt Date: 20240228
  Transmission Date: 20240410
  Serious: Yes (Other)
  Sender: FDA-Public Use
  Company Number: IN-TAKEDA-2024TUS017426

PATIENT
  Age: 7 Year
  Sex: Male

DRUGS (2)
  1. HEMOFIL M [Suspect]
     Active Substance: ANTIHEMOPHILIC FACTOR HUMAN
     Indication: Factor VIII deficiency
     Dosage: UNK
     Route: 065
  2. HEMOFIL M [Suspect]
     Active Substance: ANTIHEMOPHILIC FACTOR HUMAN
     Indication: Haemarthrosis

REACTIONS (2)
  - Anti factor VIII antibody positive [Unknown]
  - Drug ineffective [Unknown]
